FAERS Safety Report 4930912-1 (Version None)
Quarter: 2006Q1

REPORT INFORMATION
  Report Type: 
  Country: None (occurrence: None)
  Receive Date: 20060227
  Receipt Date: 20060220
  Transmission Date: 20060701
  Serious: Yes (Death, Life-Threatening, Hospitalization)
  Sender: FDA-Public Use
  Company Number: 200610176BVD

PATIENT
  Age: 82 Year
  Sex: Female
  Weight: 58 kg

DRUGS (5)
  1. AVELOX [Suspect]
     Indication: PNEUMONIA
     Dosage: 400 MG, TOTAL DAILY, ORAL
     Route: 048
     Dates: start: 20051130, end: 20051207
  2. PREDNISOLONE [Concomitant]
  3. NOVALGIN [Concomitant]
  4. ACC [Concomitant]
  5. CODEIN [Concomitant]

REACTIONS (6)
  - CLOSTRIDIUM COLITIS [None]
  - MULTI-ORGAN FAILURE [None]
  - RENAL FAILURE [None]
  - RESPIRATORY FAILURE [None]
  - SEPSIS [None]
  - SHOCK [None]
